FAERS Safety Report 5596375-0 (Version None)
Quarter: 2008Q1

REPORT INFORMATION
  Report Type: 
  Country: None (occurrence: None)
  Receive Date: 20080118
  Receipt Date: 20080108
  Transmission Date: 20080703
  Serious: Yes (Hospitalization)
  Sender: FDA-Public Use
  Company Number: US-PFIZER INC-2005151819

PATIENT
  Sex: Male
  Weight: 54.5 kg

DRUGS (8)
  1. SU-011,248 [Suspect]
     Indication: GASTROINTESTINAL STROMAL TUMOUR
     Route: 048
     Dates: start: 20050929, end: 20051020
  2. SU-011,248 [Suspect]
     Route: 048
     Dates: start: 20051104, end: 20051107
  3. METOPROLOL TARTRATE [Concomitant]
     Route: 048
  4. PRILOSEC [Concomitant]
     Route: 048
  5. ZOFRAN [Concomitant]
     Route: 048
  6. OXYCODONE [Concomitant]
     Route: 048
     Dates: start: 20050727, end: 20051107
  7. REGLAN [Concomitant]
     Route: 048
  8. AMITRIPTYLINE HCL [Concomitant]
     Route: 048
     Dates: start: 20051027, end: 20051107

REACTIONS (3)
  - DISORIENTATION [None]
  - FALL [None]
  - HEADACHE [None]
